FAERS Safety Report 9631190 (Version 2)
Quarter: 2013Q4

REPORT INFORMATION
  Report Type: Spontaneous
  Country: BR (occurrence: BR)
  Receive Date: 20131018
  Receipt Date: 20131025
  Transmission Date: 20140711
  Serious: Yes (Other)
  Sender: FDA-Public Use
  Company Number: BR-JNJFOC-20131007215

PATIENT
  Age: 89 Year
  Sex: Male
  Weight: 53 kg

DRUGS (12)
  1. GALANTAMINE HBR [Suspect]
     Indication: PRODUCT USED FOR UNKNOWN INDICATION
     Route: 065
     Dates: start: 2009
  2. DONEPEZIL [Suspect]
     Indication: DEMENTIA ALZHEIMER^S TYPE
     Route: 065
     Dates: start: 20130920, end: 20131001
  3. DONEPEZIL [Suspect]
     Indication: DEMENTIA ALZHEIMER^S TYPE
     Route: 065
     Dates: start: 2009
  4. ZOLADEX LA [Concomitant]
     Indication: PROSTATIC SPECIFIC ANTIGEN INCREASED
     Route: 065
     Dates: start: 201307
  5. ZOLADEX LA [Concomitant]
     Indication: PROSTATE CANCER
     Route: 065
     Dates: start: 201307
  6. LOSARTAN POTASSIUM [Concomitant]
     Indication: PRODUCT USED FOR UNKNOWN INDICATION
     Route: 065
     Dates: start: 2004
  7. AMLODIPINE BESYLATE [Concomitant]
     Indication: HYPERTENSION
     Route: 065
     Dates: start: 2004
  8. GLIFAGE [Concomitant]
     Indication: DIABETES MELLITUS
     Route: 065
     Dates: start: 2004
  9. SIMVASTATINE [Concomitant]
     Indication: BLOOD CHOLESTEROL INCREASED
     Route: 065
     Dates: start: 2004
  10. VITAMIN D [Concomitant]
     Indication: PRODUCT USED FOR UNKNOWN INDICATION
     Route: 065
  11. VITAMINS,NOS [Concomitant]
     Indication: ANAEMIA
     Route: 065
     Dates: start: 201307
  12. ZARGUS [Concomitant]
     Indication: DEMENTIA ALZHEIMER^S TYPE
     Route: 065
     Dates: start: 20130920, end: 20131001

REACTIONS (1)
  - Bedridden [Recovered/Resolved]
